FAERS Safety Report 15458677 (Version 1)
Quarter: 2018Q4

REPORT INFORMATION
  Report Type: Spontaneous
  Country: US (occurrence: US)
  Receive Date: 20181003
  Receipt Date: 20181003
  Transmission Date: 20190204
  Serious: Yes (Hospitalization)
  Sender: FDA-Public Use
  Company Number: US-BAYER-2018-180266

PATIENT
  Age: 84 Year
  Sex: Male
  Weight: 102.99 kg

DRUGS (4)
  1. PLAVIX [Interacting]
     Active Substance: CLOPIDOGREL BISULFATE
     Indication: CEREBROVASCULAR ACCIDENT
     Dosage: 75 MG, QD
     Route: 048
     Dates: start: 20180705, end: 20180714
  2. ATORVASTATIN CALCIUM. [Concomitant]
     Active Substance: ATORVASTATIN CALCIUM
     Dosage: UNK
     Dates: start: 20180705
  3. ADENOVIRUS VACCINE [Concomitant]
     Active Substance: ADENOVIRUS VACCINE
     Indication: PROSTATE CANCER
     Dosage: 130 MG, UNK
     Route: 030
     Dates: start: 20180614
  4. BAYER LOW DOSE [Suspect]
     Active Substance: ASPIRIN
     Indication: CORONARY ARTERY DISEASE
     Dosage: 81 MG, QD
     Route: 048
     Dates: start: 20130513, end: 20180714

REACTIONS (6)
  - Anaemia [Recovered/Resolved]
  - Gastrointestinal ulcer [None]
  - Haemorrhage [Recovered/Resolved]
  - Labelled drug-drug interaction medication error [None]
  - Duodenitis [None]
  - Gastritis [None]

NARRATIVE: CASE EVENT DATE: 20180714
